FAERS Safety Report 8622278-0 (Version None)
Quarter: 2012Q3

REPORT INFORMATION
  Report Type: 
  Country: None (occurrence: None)
  Receive Date: 20120822
  Receipt Date: 20120822
  Transmission Date: 20120928
  Serious: Yes (Life-Threatening)
  Sender: FDA-Public Use
  Company Number: None

PATIENT
  Sex: Female
  Weight: 56.246 kg

DRUGS (3)
  1. TRAZODONE HCL [Suspect]
     Indication: ANXIETY
     Dosage: ONE BY MOUTH AT BEDTIME
     Route: 048
     Dates: start: 20111105, end: 20111106
  2. TRAZODONE HCL [Suspect]
     Indication: DEPRESSION
     Dosage: ONE BY MOUTH AT BEDTIME
     Route: 048
     Dates: start: 20111105, end: 20111106
  3. BUPRENORPHINE HCL [Suspect]
     Indication: DEPENDENCE
     Dosage: ONE BY MOUTH EVERY EIGHT HOURS
     Route: 048
     Dates: start: 20111028

REACTIONS (1)
  - SEROTONIN SYNDROME [None]
